FAERS Safety Report 9682490 (Version 1)
Quarter: 2013Q4

REPORT INFORMATION
  Report Type: Report from Study
  Country: CA (occurrence: CA)
  Receive Date: 20131112
  Receipt Date: 20131112
  Transmission Date: 20140711
  Serious: Yes (Other)
  Sender: FDA-Public Use
  Company Number: CA-JNJFOC-20131103242

PATIENT
  Age: 74 Year
  Sex: Female
  Weight: 65 kg

DRUGS (9)
  1. REMICADE [Suspect]
     Indication: RHEUMATOID ARTHRITIS
     Route: 042
     Dates: start: 20090109
  2. METHOTREXATE [Concomitant]
     Route: 048
  3. PREDNISONE [Concomitant]
     Route: 048
  4. SYNTHROID [Concomitant]
     Route: 065
  5. WELLBUTRIN [Concomitant]
     Route: 065
  6. FOLIC ACID [Concomitant]
     Route: 065
  7. MAVIK [Concomitant]
     Route: 065
  8. ESTRADOT PATCH [Concomitant]
     Route: 065
  9. VENTOLIN [Concomitant]
     Route: 065

REACTIONS (5)
  - Muscle spasms [Recovered/Resolved]
  - Pelvic haemorrhage [Not Recovered/Not Resolved]
  - Rectal haemorrhage [Not Recovered/Not Resolved]
  - Thrombosis [Not Recovered/Not Resolved]
  - Abdominal pain [Not Recovered/Not Resolved]
